FAERS Safety Report 21344042 (Version 1)
Quarter: 2022Q3

REPORT INFORMATION
  Report Type: Spontaneous
  Country: US (occurrence: US)
  Receive Date: 20220916
  Receipt Date: 20220916
  Transmission Date: 20221027
  Serious: No
  Sender: FDA-Public Use
  Company Number: US-SK LIFE SCIENCE, INC-SKPVG-2022-000457

PATIENT

DRUGS (14)
  1. XCOPRI [Suspect]
     Active Substance: CENOBAMATE
     Indication: Epilepsy
     Dosage: 12.5 MILLIGRAM
     Route: 048
     Dates: start: 20220412, end: 20220425
  2. XCOPRI [Suspect]
     Active Substance: CENOBAMATE
     Indication: Seizure
     Dosage: 25 MILLIGRAM
     Route: 048
     Dates: start: 20220426, end: 20220509
  3. XCOPRI [Suspect]
     Active Substance: CENOBAMATE
     Dosage: 50 MILLIGRAM, QD
     Route: 048
     Dates: start: 20220510, end: 20220609
  4. XCOPRI [Suspect]
     Active Substance: CENOBAMATE
     Dosage: 50 MILLIGRAM
     Route: 048
     Dates: start: 20220531, end: 20220608
  5. ZYRTEC [Suspect]
     Active Substance: CETIRIZINE HYDROCHLORIDE
     Indication: Product used for unknown indication
     Route: 065
  6. AMLODIPINE BESYLATE\BENAZEPRIL HYDROCHLORIDE [Concomitant]
     Active Substance: AMLODIPINE BESYLATE\BENAZEPRIL HYDROCHLORIDE
     Indication: Product used for unknown indication
     Dosage: 5-20 MG
     Route: 048
  7. ATORVASTATIN [Concomitant]
     Active Substance: ATORVASTATIN
     Indication: Product used for unknown indication
     Dosage: 80 MILLIGRAM, QD
     Route: 048
  8. BRIVARACETAM [Concomitant]
     Active Substance: BRIVARACETAM
     Indication: Product used for unknown indication
     Dosage: 75 MILLIGRAM, 2 DAILY
     Route: 048
  9. CHLORTHALIDONE [Concomitant]
     Active Substance: CHLORTHALIDONE
     Indication: Product used for unknown indication
     Dosage: 25 MILLIGRAM, QD
     Route: 048
  10. CHOLECALCIFEROL [Concomitant]
     Active Substance: CHOLECALCIFEROL
     Indication: Product used for unknown indication
     Dosage: 1000 UNK, QD
     Route: 048
  11. CLOPIDOGREL [Concomitant]
     Active Substance: CLOPIDOGREL BISULFATE
     Indication: Product used for unknown indication
     Dosage: 75 MILLIGRAM, QD
     Route: 048
  12. DULOXETINE [Concomitant]
     Active Substance: DULOXETINE
     Indication: Product used for unknown indication
     Dosage: 30 MILLIGRAM, 2 DAILY
     Route: 048
  13. OMEPRAZOLE [Concomitant]
     Active Substance: OMEPRAZOLE
     Indication: Product used for unknown indication
     Dosage: 20 MILLIGRAM, QD
     Route: 048
  14. PROPRANOLOL [Concomitant]
     Active Substance: PROPRANOLOL HYDROCHLORIDE
     Indication: Product used for unknown indication
     Dosage: 40 MILLIGRAM, 2 DAILY
     Route: 048

REACTIONS (7)
  - Taste disorder [Recovering/Resolving]
  - Depressed mood [Recovered/Resolved]
  - General physical health deterioration [Recovering/Resolving]
  - Mood altered [Unknown]
  - Somnolence [Recovering/Resolving]
  - Depression [Unknown]
  - Fatigue [Unknown]
